FAERS Safety Report 8644588 (Version 4)
Quarter: 2012Q4

REPORT INFORMATION
  Report Type: 
  Country: US (occurrence: US)
  Receive Date: 20120629
  Receipt Date: 20121011
  Transmission Date: 20130627
  Serious: No
  Sender: FDA-Public Use
  Company Number: US-ASTRAZENECA-2012SE41478

PATIENT
  Age: 53 Year
  Sex: Female

DRUGS (5)
  1. TOPROL XL [Suspect]
     Route: 048
  2. TOPROL XL [Suspect]
     Route: 048
  3. TOPROL XL [Suspect]
     Route: 048
  4. TOPROL XL [Suspect]
     Dosage: 100 MG IN THE MORNING AND 100 MG AT SUPPER TIME
     Route: 048
  5. LISINOPRIL [Suspect]
     Route: 048

REACTIONS (5)
  - Hypertension [Unknown]
  - Nervousness [Unknown]
  - Drug effect incomplete [Unknown]
  - Intentional drug misuse [Unknown]
  - Drug dose omission [Unknown]
